FAERS Safety Report 7767287-9 (Version None)
Quarter: 2011Q3

REPORT INFORMATION
  Report Type: 
  Country: None (occurrence: None)
  Receive Date: 20110922
  Receipt Date: 20110104
  Transmission Date: 20111222
  Serious: No
  Sender: FDA-Public Use
  Company Number: US-ASTRAZENECA-2011SE00478

PATIENT
  Age: 45 Year
  Sex: Female
  Weight: 111.1 kg

DRUGS (4)
  1. SEROQUEL [Suspect]
     Indication: SCHIZOAFFECTIVE DISORDER BIPOLAR TYPE
     Dosage: 400 BID OR 800 MG AT NIGHT
     Route: 048
     Dates: start: 20070214, end: 20070101
  2. AMLODIPINE [Concomitant]
     Indication: HYPERTENSION
  3. LISINOPRIL [Concomitant]
     Indication: HYPERTENSION
  4. SEROQUEL [Suspect]
     Route: 048
     Dates: start: 20110103

REACTIONS (3)
  - WEIGHT INCREASED [None]
  - SLEEP DISORDER [None]
  - THERAPEUTIC RESPONSE UNEXPECTED [None]
